FAERS Safety Report 5689584-3 (Version None)
Quarter: 2008Q1

REPORT INFORMATION
  Report Type: 
  Country: None (occurrence: None)
  Receive Date: 20080328
  Receipt Date: 20080318
  Transmission Date: 20080703
  Serious: Yes (Other)
  Sender: FDA-Public Use
  Company Number: 232689J08USA

PATIENT
  Age: 50 Year
  Sex: Female

DRUGS (3)
  1. REBIF [Suspect]
     Indication: MULTIPLE SCLEROSIS
     Dosage: 44 MCG, 3 IN 1 WEEKS, SUBCUTANEOUS
     Route: 058
     Dates: start: 20070911, end: 20080314
  2. TOPAMAX [Concomitant]
  3. FIORICET (AXOTAL/00727001/) [Concomitant]

REACTIONS (4)
  - CALCINOSIS [None]
  - DYSPNOEA [None]
  - HEADACHE [None]
  - ISCHAEMIA [None]
